FAERS Safety Report 6240605-9 (Version None)
Quarter: 2009Q2

REPORT INFORMATION
  Report Type: 
  Country: None (occurrence: None)
  Receive Date: 20090623
  Receipt Date: 20081029
  Transmission Date: 20091009
  Serious: No
  Sender: FDA-Public Use
  Company Number: US-ASTRAZENECA-2008UW24240

PATIENT
  Sex: Male

DRUGS (2)
  1. PULMICORT RESPULES [Suspect]
     Dosage: 1 MG
     Route: 055
  2. XOPENEX [Suspect]
     Route: 065

REACTIONS (3)
  - DIZZINESS [None]
  - NERVOUSNESS [None]
  - TREMOR [None]
